FAERS Safety Report 8396993-0 (Version None)
Quarter: 2012Q2

REPORT INFORMATION
  Report Type: 
  Country: None (occurrence: None)
  Receive Date: 20120530
  Receipt Date: 20120523
  Transmission Date: 20120825
  Serious: Yes (Other)
  Sender: FDA-Public Use
  Company Number: US-PFIZER INC-2012125019

PATIENT
  Sex: Female
  Weight: 57.143 kg

DRUGS (7)
  1. CLINDAMYCIN PHOSPHATE [Suspect]
     Indication: STAPHYLOCOCCAL SKIN INFECTION
     Dosage: UNK, 2X/DAY
     Route: 061
     Dates: start: 20120401, end: 20120522
  2. ACETYLSALICYLIC ACID [Concomitant]
     Dosage: 81 MG, DAILY
  3. SINGULAIR [Concomitant]
     Indication: ASTHMA
     Dosage: UNK
  4. CLINDAMYCIN [Suspect]
     Indication: STAPHYLOCOCCAL SKIN INFECTION
     Dosage: 300 MG, 3X/DAY
     Dates: start: 20120518
  5. XANAX [Concomitant]
     Dosage: 0.5 MG, 4X/DAY
  6. HYDROXYZINE [Concomitant]
     Dosage: 25 MG, DAILY
  7. CALCIUM W/COLECALCIFEROL [Concomitant]
     Dosage: UNK

REACTIONS (16)
  - MUSCULOSKELETAL DISORDER [None]
  - DRUG HYPERSENSITIVITY [None]
  - SEBORRHOEA [None]
  - DYSKINESIA [None]
  - LACERATION [None]
  - HAIR TEXTURE ABNORMAL [None]
  - LIGAMENT SPRAIN [None]
  - EYELID RETRACTION [None]
  - KNEE DEFORMITY [None]
  - FOOT DEFORMITY [None]
  - HEADACHE [None]
  - GASTROINTESTINAL SOUNDS ABNORMAL [None]
  - CRYING [None]
  - SKIN TIGHTNESS [None]
  - FAECES DISCOLOURED [None]
  - HAEMATOCHEZIA [None]
